FAERS Safety Report 5700431-3 (Version None)
Quarter: 2008Q2

REPORT INFORMATION
  Report Type: 
  Country: None (occurrence: None)
  Receive Date: 20080408
  Receipt Date: 20080408
  Transmission Date: 20081010
  Serious: No
  Sender: FDA-Public Use
  Company Number: None

PATIENT
  Age: 63 Year
  Sex: Male
  Weight: 79.3795 kg

DRUGS (1)
  1. ZICAM MATRIXX [Suspect]
     Indication: NASOPHARYNGITIS
     Dosage: ONE SPRAY FEB 5, 2008 NASAL ONE SPRAY FEB 6, 2008 NASAL
     Route: 045
     Dates: start: 20080205, end: 20080206

REACTIONS (3)
  - AGEUSIA [None]
  - ANOSMIA [None]
  - FEELING COLD [None]
